FAERS Safety Report 5537495-6 (Version None)
Quarter: 2007Q4

REPORT INFORMATION
  Report Type: 
  Country: None (occurrence: None)
  Receive Date: 20071207
  Receipt Date: 20071128
  Transmission Date: 20080405
  Serious: Yes (Hospitalization)
  Sender: FDA-Public Use
  Company Number: US-ELI_LILLY_AND_COMPANY-US200711001007

PATIENT
  Sex: Female
  Weight: 77.098 kg

DRUGS (15)
  1. BYETTA [Suspect]
     Dosage: 5 UG, 2/D
     Route: 058
     Dates: start: 20061018, end: 20061118
  2. BYETTA [Suspect]
     Dosage: 10 UG, 2/D
     Route: 058
     Dates: start: 20061119, end: 20070615
  3. BYETTA [Suspect]
     Dosage: 5 UG, 2/D
     Route: 058
     Dates: start: 20070101, end: 20071104
  4. ENABLEX                            /01760402/ [Concomitant]
     Indication: BLADDER DISORDER
     Dosage: 7.5 MG, DAILY (1/D)
     Dates: start: 20071016, end: 20071101
  5. VESICARE /01735902/ [Concomitant]
     Indication: BLADDER DISORDER
     Dosage: 5 MG, DAILY (1/D)
     Dates: start: 20071101, end: 20071104
  6. BONIVA [Concomitant]
     Dosage: UNK, MONTHLY (1/M)
  7. HYDROCODONE BITARTRATE [Concomitant]
     Indication: PAIN
     Dosage: 1 D/F, AS NEEDED
  8. HYDROCODONE W/APAP [Concomitant]
     Indication: PAIN
     Dosage: UNK, AS NEEDED
  9. WELLBUTRIN XL [Concomitant]
     Dosage: 150 MG, DAILY (1/D)
  10. ATACAND HCT [Concomitant]
     Indication: BLOOD PRESSURE
     Dosage: 1 D/F, UNKNOWN
  11. THYROID THERAPY [Concomitant]
     Indication: THYROID DISORDER
     Dosage: UNK, UNKNOWN
  12. NIASPAN [Concomitant]
     Indication: LIPIDS
     Dosage: UNK, UNKNOWN
  13. SIMVASTIN-MEPHA [Concomitant]
     Indication: BLOOD CHOLESTEROL
     Dosage: 20 MG, UNKNOWN
  14. METFORMIN /00082702/ [Concomitant]
     Indication: DIABETES MELLITUS
     Dosage: 1000 MG, 2/D
  15. AVANDIA [Concomitant]
     Dosage: UNK, UNKNOWN
     Dates: end: 20070101

REACTIONS (9)
  - BLOOD GLUCOSE ABNORMAL [None]
  - FALL [None]
  - GENERALISED ERYTHEMA [None]
  - HIP FRACTURE [None]
  - MUSCLE SPASMS [None]
  - NAUSEA [None]
  - PRURITUS GENERALISED [None]
  - SKIN BURNING SENSATION [None]
  - VOMITING [None]
